FAERS Safety Report 8467046 (Version 3)
Quarter: 2013Q4

REPORT INFORMATION
  Report Type: Report from Study
  Country: JP (occurrence: JP)
  Receive Date: 20120320
  Receipt Date: 20131024
  Transmission Date: 20140711
  Serious: Yes (Death, Hospitalization, Other)
  Sender: FDA-Public Use
  Company Number: JP-TEVA-2011004053

PATIENT
  Age: 74 Year
  Sex: Male
  Weight: 77 kg

DRUGS (12)
  1. BENDAMUSTIN [Suspect]
     Indication: MANTLE CELL LYMPHOMA
     Dosage: UID/QD
     Route: 042
     Dates: start: 20110301, end: 20110302
  2. BENDAMUSTIN [Suspect]
     Dosage: UID/QD
     Route: 042
     Dates: start: 20110322, end: 20110323
  3. BENDAMUSTIN [Suspect]
     Dosage: UID/QD
     Route: 042
     Dates: start: 20110414, end: 20110415
  4. BENDAMUSTIN [Suspect]
     Dosage: UID/QD
     Route: 042
     Dates: start: 20110519, end: 20110520
  5. BENDAMUSTIN [Suspect]
     Dosage: UID/QD
     Route: 042
     Dates: start: 20110630, end: 20110701
  6. BENDAMUSTIN [Suspect]
     Dosage: UID/QD
     Route: 042
     Dates: start: 20110818, end: 20110819
  7. LAFUTIDINE [Concomitant]
     Indication: PROPHYLAXIS
     Dosage: 20 MILLIGRAM DAILY;
  8. BACTRIM [Concomitant]
     Indication: PROPHYLAXIS
  9. DILTIAZEM HYDROCHLORIDE [Concomitant]
     Indication: HYPERTENSION
     Dosage: 100 MILLIGRAM DAILY;
  10. MAGNESIUM OXIDE [Concomitant]
     Indication: CONSTIPATION
     Dosage: 1980 MILLIGRAM DAILY;
  11. ALLOPURINOL [Concomitant]
     Indication: PROPHYLAXIS
     Dosage: 300 MILLIGRAM DAILY;
  12. PREDNISOLONE [Concomitant]
     Indication: MANTLE CELL LYMPHOMA
     Dosage: 10 MILLIGRAM DAILY;
     Dates: start: 20110326

REACTIONS (10)
  - Renal impairment [Recovered/Resolved]
  - C-reactive protein increased [Recovering/Resolving]
  - Blood urea increased [Recovered/Resolved]
  - Disease progression [Fatal]
  - Lymphocyte count decreased [Recovering/Resolving]
  - Platelet count decreased [Recovering/Resolving]
  - Neutrophil count decreased [Recovered/Resolved]
  - Pyrexia [Recovered/Resolved]
  - White blood cell count decreased [Recovered/Resolved]
  - Nausea [Recovered/Resolved]
